FAERS Safety Report 9735128 (Version 1)
Quarter: 2013Q4

REPORT INFORMATION
  Report Type: Spontaneous
  Country: DE (occurrence: None)
  Receive Date: 20131204
  Receipt Date: 20131204
  Transmission Date: 20140711
  Serious: Yes (Other)
  Sender: FDA-Public Use
  Company Number: 1312-1533

PATIENT
  Sex: 0

DRUGS (1)
  1. EYLEA [Suspect]
     Indication: AGE-RELATED MACULAR DEGENERATION

REACTIONS (3)
  - Disease progression [None]
  - Age-related macular degeneration [None]
  - Macular oedema [None]
